FAERS Safety Report 6821347-5 (Version None)
Quarter: 2010Q3

REPORT INFORMATION
  Report Type: 
  Country: None (occurrence: None)
  Receive Date: 20100707
  Receipt Date: 20080805
  Transmission Date: 20110219
  Serious: No
  Sender: FDA-Public Use
  Company Number: US-PFIZER INC-2008037820

PATIENT
  Sex: Female
  Weight: 55.79 kg

DRUGS (3)
  1. ZOLOFT [Suspect]
     Indication: SOCIAL PHOBIA
     Route: 048
     Dates: start: 20080116, end: 20080606
  2. MOTRIN [Concomitant]
  3. KLONOPIN [Concomitant]

REACTIONS (2)
  - ARTHRALGIA [None]
  - DRUG INEFFECTIVE [None]
